FAERS Safety Report 9648920 (Version 3)
Quarter: 2014Q2

REPORT INFORMATION
  Report Type: Spontaneous
  Country: US (occurrence: None)
  Receive Date: 20131018
  Receipt Date: 20140421
  Transmission Date: 20141212
  Serious: Yes (Other)
  Sender: FDA-Public Use
  Company Number: AEGR000109

PATIENT
  Age: 68 Year
  Sex: Female
  Weight: 63.5 kg

DRUGS (8)
  1. JUXTAPID [Suspect]
     Indication: TYPE IIA HYPERLIPIDAEMIA
     Route: 048
     Dates: start: 201305, end: 201305
  2. GLUCOSAMINE + CHONDROITIN (CHONDROITIN SULFATE, GLUCOSAMINE SULFATE) [Concomitant]
  3. OMEGA 3 (FISH OIL) [Concomitant]
  4. GINGER (GINGER) [Concomitant]
  5. GARLIC (GARLIC) [Concomitant]
  6. ASPIRIN (ACETYLSALICYLIC ACID) [Concomitant]
  7. CENTURM SILVER (ASCORBIC ACID, BIOTIN, CALCIUM, CALCIUM PANTOTHENATE, CHLORINE, CHROMIUM, COLECALCIFEROL, COPPER, CYANOCOBALAMIN, FOLIC ACID, IODINE, IRON, MAGNESIUM, MANGANESE, MOLYBDENUM, NICKEL, NICOTINAMIDE, PHOSPHORUS, PHYTOMENADIONE, POTASSIUM,. PY [Concomitant]
  8. RED YEAST RICE (MONASCUS PURPUREUS W/UBIDECARENONE) [Concomitant]

REACTIONS (8)
  - Asthenia [None]
  - Diarrhoea [None]
  - Hepatic enzyme increased [None]
  - Low density lipoprotein increased [None]
  - Fatigue [None]
  - Abdominal discomfort [None]
  - Aspartate aminotransferase increased [None]
  - Alanine aminotransferase increased [None]
